FAERS Safety Report 4868431-3 (Version None)
Quarter: 2005Q4

REPORT INFORMATION
  Report Type: 
  Country: None (occurrence: None)
  Receive Date: 20051223
  Receipt Date: 20051219
  Transmission Date: 20060501
  Serious: Yes (Hospitalization)
  Sender: FDA-Public Use
  Company Number: 220472

PATIENT
  Age: 77 Year
  Sex: Male
  Weight: 159 kg

DRUGS (4)
  1. RITUXAN [Suspect]
     Indication: DERMATOMYOSITIS
     Dosage: 1000 MG, INTRAVENOUS
     Route: 042
     Dates: start: 20050316, end: 20050330
  2. PREDNISONE [Concomitant]
  3. HYTRIN [Concomitant]
  4. DYAZIDE [Concomitant]

REACTIONS (3)
  - LUNG CANCER METASTATIC [None]
  - METASTASES TO BONE [None]
  - METASTASES TO LIVER [None]
